FAERS Safety Report 12463139 (Version 7)
Quarter: 2016Q4

REPORT INFORMATION
  Report Type: Spontaneous
  Country: US (occurrence: US)
  Receive Date: 20160614
  Receipt Date: 20161110
  Transmission Date: 20170207
  Serious: Yes (Other)
  Sender: FDA-Public Use
  Company Number: US-ALEXION PHARMACEUTICALS INC-A201604219

PATIENT
  Sex: Female

DRUGS (2)
  1. SOLIRIS [Suspect]
     Active Substance: ECULIZUMAB
     Dosage: UNK
     Route: 042
  2. SOLIRIS [Suspect]
     Active Substance: ECULIZUMAB
     Indication: HAEMOLYTIC URAEMIC SYNDROME
     Dosage: UNK
     Route: 042

REACTIONS (11)
  - Blood creatinine abnormal [Unknown]
  - Respiratory disorder [Unknown]
  - Pulmonary vasculitis [Recovering/Resolving]
  - Gastrointestinal disorder [Unknown]
  - Transient ischaemic attack [Unknown]
  - Respiratory failure [Unknown]
  - Blood creatinine increased [Unknown]
  - Condition aggravated [Unknown]
  - Renal disorder [Unknown]
  - Influenza like illness [Unknown]
  - Haemoglobin decreased [Unknown]
